FAERS Safety Report 6603821-X (Version None)
Quarter: 2010Q1

REPORT INFORMATION
  Report Type: 
  Country: None (occurrence: None)
  Receive Date: 20100226
  Receipt Date: 20090211
  Transmission Date: 20100710
  Serious: No
  Sender: FDA-Public Use
  Company Number: A0768206A

PATIENT

DRUGS (1)
  1. LAMOTRIGINE [Suspect]

REACTIONS (1)
  - BALANCE DISORDER [None]
